FAERS Safety Report 5822888-X (Version None)
Quarter: 2008Q3

REPORT INFORMATION
  Report Type: 
  Country: None (occurrence: None)
  Receive Date: 20080724
  Receipt Date: 20080724
  Transmission Date: 20090109
  Serious: Yes (Other)
  Sender: FDA-Public Use
  Company Number: None

PATIENT
  Sex: Female
  Weight: 65.7716 kg

DRUGS (1)
  1. BONIVA [Suspect]
     Indication: OSTEOPOROSIS
     Dosage: 1 MONTHLY MONTHLY PO
     Route: 048
     Dates: start: 20080623

REACTIONS (7)
  - ARTHRALGIA [None]
  - CARDIAC DISORDER [None]
  - DIARRHOEA [None]
  - HEPATIC PAIN [None]
  - MUSCLE SPASMS [None]
  - MUSCULOSKELETAL CHEST PAIN [None]
  - MYALGIA [None]
